FAERS Safety Report 8121704-3 (Version None)
Quarter: 2012Q1

REPORT INFORMATION
  Report Type: 
  Country: None (occurrence: None)
  Receive Date: 20120208
  Receipt Date: 20120127
  Transmission Date: 20120608
  Serious: Yes (Hospitalization, Disabling, Other)
  Sender: FDA-Public Use
  Company Number: US-CELGENEUS-163-C5013-11113094

PATIENT
  Sex: Male
  Weight: 63.8 kg

DRUGS (42)
  1. LENALIDOMIDE [Suspect]
     Dosage: 20 MILLIGRAM
     Route: 048
     Dates: start: 20070815
  2. VINCRISTINE [Concomitant]
     Indication: NON-HODGKIN'S LYMPHOMA
     Route: 065
  3. BENDAMUSTINE [Concomitant]
     Route: 065
  4. PRILOSEC [Concomitant]
     Dosage: 10 MILLIGRAM
     Route: 065
     Dates: start: 20070413
  5. MULTI-VITAMINS [Concomitant]
     Dosage: 1
     Route: 065
  6. ASCORBIC ACID [Concomitant]
     Dosage: 500 MILLIGRAM
     Route: 065
  7. SELENIUM [Concomitant]
     Dosage: 200 MICROGRAM
     Route: 065
  8. ATIVAN [Concomitant]
     Indication: INSOMNIA
     Dosage: 1
     Route: 065
  9. ASPIRIN [Concomitant]
     Dosage: 81 MILLIGRAM
     Route: 065
     Dates: start: 20070716
  10. REFRESH TEARS [Concomitant]
     Route: 065
     Dates: start: 20080404
  11. REFRESH LIQUID GEL [Concomitant]
     Route: 065
     Dates: start: 20080404
  12. LENALIDOMIDE [Suspect]
     Dosage: 15 MILLIGRAM
     Route: 048
     Dates: start: 20071109, end: 20080107
  13. FLAXSEED OIL [Concomitant]
     Dosage: 1000 MILLIGRAM
     Route: 065
  14. VITAMIN E [Concomitant]
     Dosage: 400 MILLIGRAM
     Route: 065
  15. OTC LOTION [Concomitant]
     Indication: DRY SKIN
  16. LASIX [Concomitant]
     Route: 065
     Dates: start: 20110501, end: 20110501
  17. VELCADE [Concomitant]
     Indication: NON-HODGKIN'S LYMPHOMA
     Route: 065
  18. CYTOXAN [Concomitant]
     Indication: NON-HODGKIN'S LYMPHOMA
     Route: 065
  19. NEUPOGEN [Concomitant]
     Indication: NEUTROPENIA
     Route: 065
     Dates: start: 20070801, end: 20070804
  20. BENDAMUSTINE [Concomitant]
     Indication: NON-HODGKIN'S LYMPHOMA
     Route: 065
  21. CALCIUM CARBONATE [Concomitant]
     Route: 065
  22. PSEUDOEPHEDRIN [Concomitant]
     Route: 065
     Dates: start: 20070823, end: 20070906
  23. LACTOBACILLUS [Concomitant]
     Route: 065
     Dates: start: 20070801, end: 20071005
  24. RITUXAN [Concomitant]
     Indication: NON-HODGKIN'S LYMPHOMA
     Route: 065
  25. RITUXAN [Concomitant]
     Route: 065
  26. VITAMIN B COMPLEX CAP [Concomitant]
     Dosage: 400 MILLIGRAM
     Route: 065
  27. LYSINE [Concomitant]
     Dosage: 500 MILLIGRAM
     Route: 065
  28. GINKGO BILOBA [Concomitant]
     Dosage: 60
     Route: 065
  29. LOVAZA [Concomitant]
     Dosage: 1000 MILLIGRAM
     Route: 065
  30. ACETAMINOPHEN [Concomitant]
     Indication: PAIN
     Route: 065
  31. ALLOPURINOL [Concomitant]
     Indication: PREMEDICATION
     Route: 065
     Dates: start: 20070716
  32. VICODIN [Concomitant]
     Indication: HEADACHE
     Route: 065
     Dates: start: 20070901
  33. BENDAMUSTINE [Concomitant]
     Route: 065
  34. COENZYME Q10 [Concomitant]
     Dosage: 150 MILLIGRAM
     Route: 065
  35. CALCIUM-MAG-ZINC [Concomitant]
     Dosage: 500-500-15MG
     Route: 065
  36. OTC LOTION [Concomitant]
     Indication: RASH
     Route: 061
  37. HYDRALAZINE HCL [Concomitant]
     Dosage: 10 MILLIGRAM
     Route: 065
     Dates: start: 20080328
  38. LENALIDOMIDE [Suspect]
     Indication: NON-HODGKIN'S LYMPHOMA
     Dosage: 25 MILLIGRAM
     Route: 048
     Dates: start: 20070716
  39. RITUXAN [Concomitant]
     Route: 065
  40. VITAMIN D [Concomitant]
     Dosage: 500 MILLIGRAM
     Route: 065
  41. AHCC [Concomitant]
     Dosage: 2 CAPSULE
     Route: 048
  42. LORATADINE [Concomitant]
     Dosage: 10 MILLIGRAM
     Route: 065
     Dates: start: 20080329

REACTIONS (1)
  - OESOPHAGEAL CARCINOMA [None]
